FAERS Safety Report 7607108-8 (Version None)
Quarter: 2011Q3

REPORT INFORMATION
  Report Type: 
  Country: None (occurrence: None)
  Receive Date: 20110713
  Receipt Date: 20110705
  Transmission Date: 20111222
  Serious: Yes (Other)
  Sender: FDA-Public Use
  Company Number: IT-JNJFOC-20110703731

PATIENT
  Age: 65 Year
  Sex: Male

DRUGS (3)
  1. KETOCONAZOLE [Suspect]
     Indication: ULCERATIVE KERATITIS
     Route: 065
  2. KETOCONAZOLE [Suspect]
     Route: 065
  3. LEVOFLOXACIN [Suspect]
     Indication: ULCERATIVE KERATITIS
     Route: 061

REACTIONS (2)
  - KERATOPATHY [None]
  - DRUG INEFFECTIVE [None]
